FAERS Safety Report 22654048 (Version 1)
Quarter: 2023Q2

REPORT INFORMATION
  Report Type: Spontaneous
  Country: CN (occurrence: CN)
  Receive Date: 20230629
  Receipt Date: 20230629
  Transmission Date: 20230722
  Serious: Yes (Hospitalization)
  Sender: FDA-Public Use
  Company Number: CN-002147023-NVSC2023CN146363

PATIENT
  Age: 85 Year
  Sex: Female

DRUGS (1)
  1. SACUBITRIL\VALSARTAN [Suspect]
     Active Substance: SACUBITRIL\VALSARTAN
     Indication: Hypertension
     Dosage: 100 MG (1 DOSAGE FORM, QD)
     Route: 048
     Dates: start: 20230613, end: 20230619

REACTIONS (5)
  - Renal impairment [Unknown]
  - Blood creatinine increased [Recovering/Resolving]
  - Productive cough [Unknown]
  - Tachypnoea [Unknown]
  - Oedema peripheral [Unknown]

NARRATIVE: CASE EVENT DATE: 20230619
